FAERS Safety Report 5665105-6 (Version None)
Quarter: 2008Q1

REPORT INFORMATION
  Report Type: 
  Country: None (occurrence: None)
  Receive Date: 20080314
  Receipt Date: 20050425
  Transmission Date: 20080703
  Serious: No
  Sender: FDA-Public Use
  Company Number: US-ABBOTT-04P-163-0256217-00

PATIENT
  Sex: Female
  Weight: 109 kg

DRUGS (13)
  1. HUMIRA [Suspect]
     Indication: RHEUMATOID ARTHRITIS
     Route: 058
     Dates: start: 20040101, end: 20040317
  2. HUMIRA [Suspect]
     Indication: RETICULOCYTOSIS
     Route: 058
  3. HUMIRA [Suspect]
     Route: 058
  4. HYDROXYCHLOROQUINE PHOSPHATE [Concomitant]
     Indication: RHEUMATOID ARTHRITIS
     Route: 048
     Dates: start: 20030101
  5. VALSARTAN [Concomitant]
     Indication: BLOOD PRESSURE
     Route: 048
     Dates: start: 20031101
  6. PREDNISONE TAB [Concomitant]
     Indication: RHEUMATOID ARTHRITIS
  7. HYDROCHLOROTHIAZIDE [Concomitant]
     Indication: DRUG USE FOR UNKNOWN INDICATION
     Route: 048
  8. ESOMEPRAZOLE MAGNESIUM [Concomitant]
     Indication: GASTROOESOPHAGEAL REFLUX DISEASE
     Route: 048
  9. VICODIN [Concomitant]
     Indication: PAIN
     Dosage: 1-2 TABLETS
     Route: 048
  10. MYCOPHENOLATE MOFETIL [Concomitant]
     Indication: DRUG USE FOR UNKNOWN INDICATION
  11. CYCLOSPORINE [Concomitant]
     Indication: DRUG USE FOR UNKNOWN INDICATION
  12. PRAVASTATIN [Concomitant]
     Indication: DRUG USE FOR UNKNOWN INDICATION
  13. TRAMADOL HCL [Concomitant]
     Indication: DRUG USE FOR UNKNOWN INDICATION

REACTIONS (11)
  - APHONIA [None]
  - C-REACTIVE PROTEIN INCREASED [None]
  - COUGH [None]
  - DEAFNESS [None]
  - EAR INFECTION [None]
  - FURUNCLE [None]
  - MUSCLE SPASMS [None]
  - NASOPHARYNGITIS [None]
  - SINUSITIS [None]
  - SYNOVITIS [None]
  - WEIGHT INCREASED [None]
